FAERS Safety Report 6277687-4 (Version None)
Quarter: 2009Q3

REPORT INFORMATION
  Report Type: 
  Country: None (occurrence: None)
  Receive Date: 20090722
  Receipt Date: 20090713
  Transmission Date: 20100115
  Serious: Yes (Congenital Anomaly)
  Sender: FDA-Public Use
  Company Number: A0681910A

PATIENT
  Sex: Male
  Weight: 2.4 kg

DRUGS (6)
  1. PAXIL CR [Suspect]
     Indication: DEPRESSION
     Dates: start: 20030101, end: 20031001
  2. PROCARDIA [Concomitant]
     Dates: start: 20031101, end: 20040201
  3. VITAMIN TAB [Concomitant]
     Dates: start: 20030701, end: 20040201
  4. KEFLEX [Concomitant]
     Dates: start: 20031125
  5. TERBUTALINE SULFATE [Concomitant]
     Dates: start: 20040105
  6. ANCEF [Concomitant]
     Dates: start: 20031016

REACTIONS (6)
  - ATRIAL SEPTAL DEFECT [None]
  - DRUG EXPOSURE DURING PREGNANCY [None]
  - FOETAL HEART RATE DECELERATION [None]
  - MECONIUM IN AMNIOTIC FLUID [None]
  - PULMONARY VALVE STENOSIS [None]
  - VENTRICULAR SEPTAL DEFECT [None]
